FAERS Safety Report 4844023-7 (Version None)
Quarter: 2005Q4

REPORT INFORMATION
  Report Type: 
  Country: None (occurrence: None)
  Receive Date: 20051202
  Receipt Date: 20050107
  Transmission Date: 20060501
  Serious: Yes (Hospitalization)
  Sender: FDA-Public Use
  Company Number: US-MERCK-0501USA00684

PATIENT
  Age: 30 Year
  Sex: Male

DRUGS (2)
  1. VIOXX [Suspect]
     Route: 048
  2. HYDROCODONE BITARTRATE [Concomitant]
     Indication: BACK PAIN
     Route: 048

REACTIONS (12)
  - ACUTE CORONARY SYNDROME [None]
  - ANXIETY [None]
  - BRONCHITIS [None]
  - BRONCHOSPASM [None]
  - CHEST PAIN [None]
  - CHRONIC OBSTRUCTIVE PULMONARY DISEASE [None]
  - CORONARY ARTERY DISEASE [None]
  - DEPRESSION [None]
  - HYPERTENSION [None]
  - MYOCARDIAL INFARCTION [None]
  - NON-CARDIAC CHEST PAIN [None]
  - PARAESTHESIA [None]
